FAERS Safety Report 6712999-9 (Version None)
Quarter: 2010Q2

REPORT INFORMATION
  Report Type: 
  Country: None (occurrence: None)
  Receive Date: 20100505
  Receipt Date: 20100505
  Transmission Date: 20101027
  Serious: Yes (Hospitalization)
  Sender: FDA-Public Use
  Company Number: None

PATIENT
  Sex: Female
  Weight: 77.65 kg

DRUGS (17)
  1. AVASTIN [Suspect]
     Indication: GLIOBLASTOMA MULTIFORME
     Dosage: 10 MG/KG -750 MG- Q 14 DAYS IV DRIP
     Route: 041
     Dates: start: 20100420, end: 20100420
  2. TEMOZOLOMIDE [Concomitant]
  3. CITALOPRAM [Concomitant]
  4. LOVENOX [Concomitant]
  5. DIFLUCAN [Concomitant]
  6. KEPPRA [Concomitant]
  7. LEVOTHYROXINE SODIUM [Concomitant]
  8. OMEPRAZOLE [Concomitant]
  9. ACETAMINOPHEN AND HYDROCODONE BITARTRATE [Concomitant]
  10. ESTRA-NORETH [Concomitant]
  11. BACTRIM DS [Concomitant]
  12. TYLENOL-500 [Concomitant]
  13. BENADRYL [Concomitant]
  14. LORAZEPAM [Concomitant]
  15. PREDNISONE [Concomitant]
  16. CARAFATE [Concomitant]
  17. ISOMETH/APAP/DICHLOR [Concomitant]

REACTIONS (6)
  - COUGH [None]
  - DEHYDRATION [None]
  - HICCUPS [None]
  - HYPOPHAGIA [None]
  - NAUSEA [None]
  - VOMITING [None]
